FAERS Safety Report 7074581-6 (Version None)
Quarter: 2010Q4

REPORT INFORMATION
  Report Type: 
  Country: None (occurrence: None)
  Receive Date: 20101029
  Receipt Date: 20100408
  Transmission Date: 20110411
  Serious: No
  Sender: FDA-Public Use
  Company Number: A0851818A

PATIENT
  Age: 45 Year
  Sex: Female

DRUGS (2)
  1. SUMATRIPTAN SUCCINATE [Suspect]
     Indication: MIGRAINE
     Dosage: 5MG UNKNOWN
     Route: 045
     Dates: start: 20100101
  2. VENLAFAXINE [Concomitant]
     Dosage: 18.75G PER DAY
     Route: 048
     Dates: start: 20091001

REACTIONS (1)
  - MENSTRUATION DELAYED [None]
